FAERS Safety Report 20473507 (Version 3)
Quarter: 2022Q2

REPORT INFORMATION
  Report Type: Report from Study
  Country: BR (occurrence: BR)
  Receive Date: 20220215
  Receipt Date: 20220602
  Transmission Date: 20220721
  Serious: Yes (Hospitalization, Other)
  Sender: FDA-Public Use
  Company Number: BR-AMGEN-BRASL2022010121

PATIENT
  Age: 61 Year
  Sex: Male

DRUGS (6)
  1. VECTIBIX [Suspect]
     Active Substance: PANITUMUMAB
     Indication: Colorectal cancer
     Dosage: UNK (EVERY 15 DAYS)
     Route: 065
     Dates: start: 20220112
  2. ACETAMINOPHEN [Concomitant]
     Active Substance: ACETAMINOPHEN
     Indication: Pain
     Dosage: 30 MILLIGRAM
  3. OXALIPLATIN [Concomitant]
     Active Substance: OXALIPLATIN
     Dosage: 50 MILLIGRAM
  4. DEXALAB [DEXAMETHASONE] [Concomitant]
     Dosage: UNK
  5. CARVEDILOL [Concomitant]
     Active Substance: CARVEDILOL
     Dosage: 6.25 MILLIGRAM, QD
  6. SPIRONOLACTONE [Concomitant]
     Active Substance: SPIRONOLACTONE
     Dosage: 25 MILLIGRAM, QD

REACTIONS (12)
  - Cholecystitis [Recovering/Resolving]
  - Dysentery [Recovered/Resolved]
  - Arrhythmia [Recovering/Resolving]
  - Pustule [Recovering/Resolving]
  - Insomnia [Recovering/Resolving]
  - Abdominal pain [Recovered/Resolved]
  - Pruritus [Recovering/Resolving]
  - Hypersensitivity [Recovering/Resolving]
  - Rash [Recovering/Resolving]
  - Chromaturia [Recovering/Resolving]
  - Malaise [Recovered/Resolved]
  - Ill-defined disorder [Recovering/Resolving]

NARRATIVE: CASE EVENT DATE: 20220101
